FAERS Safety Report 5419726-6 (Version None)
Quarter: 2007Q3

REPORT INFORMATION
  Report Type: 
  Country: None (occurrence: None)
  Receive Date: 20070718
  Receipt Date: 20060817
  Transmission Date: 20080115
  Serious: Yes (Death, Other)
  Sender: FDA-Public Use
  Company Number: 2006107553

PATIENT
  Sex: Male

DRUGS (1)
  1. CELEBREX [Suspect]
     Indication: MUSCULOSKELETAL CHEST PAIN
     Dates: start: 20010525, end: 20020810

REACTIONS (1)
  - MYOCARDIAL INFARCTION [None]
